FAERS Safety Report 24109468 (Version 1)
Quarter: 2024Q3

REPORT INFORMATION
  Report Type: Spontaneous
  Country: US (occurrence: US)
  Receive Date: 20240718
  Receipt Date: 20240718
  Transmission Date: 20241016
  Serious: No
  Sender: STI PHARMA
  Company Number: US-STI Pharma LLC-2159281

PATIENT
  Age: 75 Year
  Sex: Male

DRUGS (5)
  1. ETHAMBUTOL HYDROCHLORIDE [Suspect]
     Active Substance: ETHAMBUTOL HYDROCHLORIDE
     Dates: start: 20240408
  2. NUZYRA [Concomitant]
     Active Substance: OMADACYCLINE
     Dates: start: 20240307
  3. ARIKAYCE [Concomitant]
     Active Substance: AMIKACIN
     Dates: start: 20240408
  4. MOXIFLOXACIN [Concomitant]
     Active Substance: MOXIFLOXACIN
     Dates: start: 20240408
  5. AZITHROMYCIN [Concomitant]
     Active Substance: AZITHROMYCIN

REACTIONS (1)
  - Tinnitus [Unknown]
